FAERS Safety Report 25390436 (Version 2)
Quarter: 2025Q2

REPORT INFORMATION
  Report Type: Spontaneous
  Country: FR (occurrence: FR)
  Receive Date: 20250603
  Receipt Date: 20250603
  Transmission Date: 20250717
  Serious: Yes (Other)
  Sender: PFIZER
  Company Number: None

PATIENT
  Age: 31 Year
  Sex: Female
  Weight: 58 kg

DRUGS (8)
  1. XELJANZ [Suspect]
     Active Substance: TOFACITINIB CITRATE
     Indication: Colitis ulcerative
     Dosage: 5 MG, 2X/DAY
     Route: 048
     Dates: start: 20230622, end: 20240719
  2. RINVOQ [Suspect]
     Active Substance: UPADACITINIB
     Indication: Colitis ulcerative
     Dosage: 45 MG, 1X/DAY
     Route: 048
     Dates: start: 20240720, end: 20250122
  3. PENTASA [Concomitant]
     Active Substance: MESALAMINE
  4. INFLIXIMAB [Concomitant]
     Active Substance: INFLIXIMAB
     Dates: start: 201403, end: 201508
  5. USTEKINUMAB [Concomitant]
     Active Substance: USTEKINUMAB
     Dates: start: 202107, end: 202306
  6. TOFACITINIB [Concomitant]
     Active Substance: TOFACITINIB
     Dates: start: 201906, end: 202107
  7. VEDOLIZUMAB [Concomitant]
     Active Substance: VEDOLIZUMAB
     Dates: start: 201609, end: 201906
  8. ADALIMUMAB [Concomitant]
     Active Substance: ADALIMUMAB
     Dates: start: 201508, end: 201608

REACTIONS (1)
  - Cholangiocarcinoma [Not Recovered/Not Resolved]

NARRATIVE: CASE EVENT DATE: 20241213
